FAERS Safety Report 9091629 (Version 1)
Quarter: 2013Q1

REPORT INFORMATION
  Report Type: Spontaneous
  Country: EG (occurrence: EG)
  Receive Date: 20130131
  Receipt Date: 20130131
  Transmission Date: 20140127
  Serious: Yes (Other)
  Sender: FDA-Public Use
  Company Number: EG-ROCHE-1184522

PATIENT
  Sex: Female

DRUGS (4)
  1. XELODA [Suspect]
     Indication: BREAST CANCER METASTATIC
     Route: 048
  2. HERCEPTIN [Suspect]
     Indication: BREAST CANCER METASTATIC
     Route: 041
  3. OXALIPLATIN [Suspect]
     Indication: BREAST CANCER METASTATIC
     Route: 065
  4. LAPATINIB [Suspect]
     Indication: BREAST CANCER METASTATIC
     Route: 065

REACTIONS (1)
  - Palmar-plantar erythrodysaesthesia syndrome [Not Recovered/Not Resolved]
